FAERS Safety Report 14110463 (Version 1)
Quarter: 2017Q4

REPORT INFORMATION
  Report Type: Spontaneous
  Country: US (occurrence: US)
  Receive Date: 20171019
  Receipt Date: 20171019
  Transmission Date: 20180321
  Serious: Yes (Other)
  Sender: FDA-Public Use
  Company Number: None

PATIENT
  Age: 16 Year
  Sex: Female

DRUGS (1)
  1. APLISOL [Suspect]
     Active Substance: TUBERCULIN PURIFIED PROTEIN DERIVATIVE
     Indication: TUBERCULIN TEST
     Dosage: ?          OTHER FREQUENCY:ONCE ONLY;?
     Route: 023
     Dates: start: 20170808, end: 20170808

REACTIONS (2)
  - Loss of consciousness [None]
  - Dizziness [None]

NARRATIVE: CASE EVENT DATE: 20170808
